FAERS Safety Report 5499935-0 (Version None)
Quarter: 2007Q4

REPORT INFORMATION
  Report Type: 
  Country: None (occurrence: None)
  Receive Date: 20071026
  Receipt Date: 20071015
  Transmission Date: 20080405
  Serious: Yes (Hospitalization, Other)
  Sender: FDA-Public Use
  Company Number: US-PFIZER INC-2007088079

PATIENT
  Sex: Female

DRUGS (1)
  1. BEXTRA [Suspect]
     Indication: ARTHRALGIA

REACTIONS (10)
  - ARTHROPATHY [None]
  - CANDIDIASIS [None]
  - DACRYOSTENOSIS ACQUIRED [None]
  - DEPRESSION [None]
  - DYSPNOEA EXERTIONAL [None]
  - OESOPHAGITIS [None]
  - PULMONARY EMBOLISM [None]
  - PULMONARY INFARCTION [None]
  - RASH [None]
  - STEVENS-JOHNSON SYNDROME [None]
